FAERS Safety Report 5818129-X (Version None)
Quarter: 2008Q3

REPORT INFORMATION
  Report Type: 
  Country: None (occurrence: None)
  Receive Date: 20080722
  Receipt Date: 20071015
  Transmission Date: 20090109
  Serious: No
  Sender: FDA-Public Use
  Company Number: US-BAYER-US-2007-039058

PATIENT
  Age: 68 Year
  Sex: Male
  Weight: 87 kg

DRUGS (1)
  1. MAGNEVIST [Suspect]
     Indication: NUCLEAR MAGNETIC RESONANCE IMAGING
     Dosage: UNIT DOSE: 19 ML
     Route: 042
     Dates: start: 20071010, end: 20071010

REACTIONS (4)
  - ERYTHEMA [None]
  - EYE SWELLING [None]
  - PRURITUS [None]
  - SNEEZING [None]
